FAERS Safety Report 4266729-3 (Version None)
Quarter: 2004Q1

REPORT INFORMATION
  Report Type: 
  Country: None (occurrence: None)
  Receive Date: 20040108
  Receipt Date: 20031229
  Transmission Date: 20041129
  Serious: Yes (Other)
  Sender: FDA-Public Use
  Company Number: US-GLAXOSMITHKLINE-A0490821A

PATIENT

DRUGS (1)
  1. ADVAIR DISKUS 250/50 [Suspect]
     Indication: ILL-DEFINED DISORDER
     Route: 055

REACTIONS (5)
  - HAEMORRHAGE [None]
  - HOARSENESS [None]
  - INFLAMMATION [None]
  - VASODILATATION [None]
  - VOCAL CORD DISORDER [None]
